FAERS Safety Report 10354926 (Version 1)
Quarter: 2014Q3

REPORT INFORMATION
  Report Type: Spontaneous
  Country: CA (occurrence: CA)
  Receive Date: 20140731
  Receipt Date: 20140731
  Transmission Date: 20150326
  Serious: Yes (Disabling)
  Sender: FDA-Public Use
  Company Number: CA-ASTRAZENECA-2014SE53540

PATIENT
  Age: 50 Year
  Sex: Male
  Weight: 88.5 kg

DRUGS (1)
  1. CRESTOR [Suspect]
     Active Substance: ROSUVASTATIN CALCIUM
     Route: 048

REACTIONS (3)
  - Dysuria [Unknown]
  - Nocturia [Unknown]
  - Prostatic specific antigen increased [Unknown]
